FAERS Safety Report 12401219 (Version 1)
Quarter: 2016Q2

REPORT INFORMATION
  Report Type: Spontaneous
  Country: US (occurrence: None)
  Receive Date: 20160524
  Receipt Date: 20160524
  Transmission Date: 20160815
  Serious: No
  Sender: FDA-Public Use
  Company Number: None

PATIENT
  Age: 62 Year
  Sex: Male

DRUGS (2)
  1. VIVITROL [Suspect]
     Active Substance: NALTREXONE
     Indication: ALCOHOLISM
     Route: 030
     Dates: start: 201601, end: 201605
  2. VIVITROL [Suspect]
     Active Substance: NALTREXONE
     Indication: ALCOHOL POISONING
     Route: 030
     Dates: start: 201601, end: 201605

REACTIONS (1)
  - Myalgia [None]

NARRATIVE: CASE EVENT DATE: 201605
